FAERS Safety Report 4330779-9 (Version None)
Quarter: 2004Q2

REPORT INFORMATION
  Report Type: 
  Country: None (occurrence: None)
  Receive Date: 20040401
  Receipt Date: 20040401
  Transmission Date: 20050107
  Serious: Yes (Hospitalization)
  Sender: FDA-Public Use
  Company Number: None

PATIENT
  Age: 54 Year
  Sex: Male
  Weight: 81.6475 kg

DRUGS (3)
  1. PACLITAXEL [Suspect]
     Indication: OROPHARYNGEAL CANCER STAGE UNSPECIFIED
     Dates: start: 20010102, end: 20010212
  2. PACLITAXEL [Suspect]
     Indication: SQUAMOUS CELL CARCINOMA
     Dates: start: 20010102, end: 20010212
  3. XELODA [Suspect]
     Dates: start: 20010102, end: 20010212

REACTIONS (1)
  - PNEUMONIA ASPIRATION [None]
